FAERS Safety Report 8596251 (Version 4)
Quarter: 2012Q4

REPORT INFORMATION
  Report Type: 
  Country: JP (occurrence: JP)
  Receive Date: 20120517
  Receipt Date: 20121031
  Transmission Date: 20130627
  Serious: Yes (Hospitalization, Other)
  Sender: FDA-Public Use
  Company Number: JP-009507513-2012SP024672

PATIENT
  Age: 62 Year
  Sex: Female
  Weight: 64 kg

DRUGS (10)
  1. PEGINTRON [Suspect]
     Indication: HEPATITIS C
     Dosage: 100 Microgram per kilogram, qw
     Route: 058
     Dates: start: 20120106, end: 20120222
  2. PEGINTRON [Suspect]
     Dosage: 80 Microgram per kilogram, qw
     Route: 058
     Dates: start: 20120223, end: 20120229
  3. PEGINTRON [Suspect]
     Dosage: 100 Microgram per kilogram, qw
     Route: 058
     Dates: start: 20120315
  4. REBETOL [Suspect]
     Indication: HEPATITIS C
     Dosage: 600 mg, qd
     Route: 048
     Dates: start: 20120106, end: 20120215
  5. REBETOL [Suspect]
     Dosage: 200 mg, qd
     Route: 048
     Dates: start: 20120216, end: 20120301
  6. REBETOL [Suspect]
     Dosage: 400 mg, QD
     Route: 048
     Dates: start: 20120322, end: 20120613
  7. REBETOL [Suspect]
     Dosage: 600 mg, qd
     Route: 048
     Dates: start: 20120614
  8. TELAVIC [Suspect]
     Indication: HEPATITIS C
     Dosage: 1500 mg, qd
     Route: 048
     Dates: start: 20120106, end: 20120220
  9. TELAVIC [Suspect]
     Dosage: 1000 mg, qd
     Route: 048
     Dates: start: 20120221, end: 20120301
  10. TALION (BEPOTASTINE BESYLATE) [Concomitant]
     Indication: PROPHYLAXIS
     Dosage: 10 mg, qd, TRADE NAME: TALION OD
     Route: 048
     Dates: start: 20120105, end: 20120219

REACTIONS (4)
  - Bronchitis [Recovered/Resolved]
  - Nausea [Recovered/Resolved]
  - Decreased appetite [Recovered/Resolved]
  - Haemoglobin decreased [Recovered/Resolved]
